FAERS Safety Report 18256266 (Version 3)
Quarter: 2021Q3

REPORT INFORMATION
  Report Type: Spontaneous
  Country: US (occurrence: US)
  Receive Date: 20200911
  Receipt Date: 20210719
  Transmission Date: 20211014
  Serious: Yes (Other)
  Sender: FDA-Public Use
  Company Number: US-UCBSA-2020035093

PATIENT
  Age: 21 Year
  Sex: Female

DRUGS (2)
  1. NAYZILAM [Suspect]
     Active Substance: MIDAZOLAM
     Indication: SEIZURE CLUSTER
     Dosage: UNK
     Route: 045
     Dates: start: 20200101
  2. NAYZILAM [Suspect]
     Active Substance: MIDAZOLAM
     Indication: EPILEPSY

REACTIONS (6)
  - Application site pain [Unknown]
  - Influenza like illness [Not Recovered/Not Resolved]
  - Seizure [Unknown]
  - Fatigue [Not Recovered/Not Resolved]
  - Generalised tonic-clonic seizure [Unknown]
  - Feeling abnormal [Not Recovered/Not Resolved]

NARRATIVE: CASE EVENT DATE: 20200831
